FAERS Safety Report 17656646 (Version 4)
Quarter: 2020Q4

REPORT INFORMATION
  Report Type: Report from Study
  Country: KR (occurrence: KR)
  Receive Date: 20200410
  Receipt Date: 20201012
  Transmission Date: 20210113
  Serious: Yes (Hospitalization)
  Sender: FDA-Public Use
  Company Number: KR-OTSUKA-2020_009217

PATIENT
  Age: 28 Year
  Sex: Female

DRUGS (10)
  1. ARIPIPRAZOLE. [Suspect]
     Active Substance: ARIPIPRAZOLE
     Dosage: 5 MG, QD (BEFORE SLEEP)
     Route: 048
     Dates: start: 20200228, end: 20200308
  2. ARIPIPRAZOLE. [Suspect]
     Active Substance: ARIPIPRAZOLE
     Indication: SCHIZOPHRENIA
     Dosage: 10 MG, UNK
     Route: 048
     Dates: start: 20200325, end: 20200401
  3. ARIPIPRAZOLE (DUAL CHAMBER) [Suspect]
     Active Substance: ARIPIPRAZOLE
     Indication: SCHIZOPHRENIA
     Dosage: 400 MG, UNK
     Route: 030
     Dates: start: 20200309, end: 20200309
  4. INVEGA [Suspect]
     Active Substance: PALIPERIDONE
     Indication: PRODUCT USED FOR UNKNOWN INDICATION
     Dosage: 12 MG, UNK
     Route: 065
     Dates: start: 20200228
  5. RIVOTRIL [Concomitant]
     Active Substance: CLONAZEPAM
     Indication: INSOMNIA
     Dosage: 1 DF, QD (STRENGTH: 0.5 MG)
     Route: 048
     Dates: start: 20191031
  6. ARIPIPRAZOLE. [Suspect]
     Active Substance: ARIPIPRAZOLE
     Dosage: 10 MG, QD (BEFORE SLEEP)
     Route: 048
     Dates: start: 20200309, end: 20200324
  7. INVEGA [Suspect]
     Active Substance: PALIPERIDONE
     Dosage: 9 MG, UNK
     Route: 065
     Dates: start: 20200317
  8. BENZTROPINE MESYLATE. [Concomitant]
     Active Substance: BENZTROPINE MESYLATE
     Indication: AKATHISIA
     Dosage: 1 DF, QD (STRENGTH: 1 MG)
     Route: 048
     Dates: start: 20191004
  9. INVEGA [Suspect]
     Active Substance: PALIPERIDONE
     Dosage: 6 MG, UNK
     Route: 065
     Dates: start: 20200309
  10. SEROQUEL [Concomitant]
     Active Substance: QUETIAPINE FUMARATE
     Indication: INSOMNIA
     Dosage: 1 DF, QD (STRENGTH: 25 MG)
     Route: 048
     Dates: start: 20191106

REACTIONS (4)
  - Soliloquy [Recovering/Resolving]
  - Headache [Recovering/Resolving]
  - Headache [Recovered/Resolved]
  - Soliloquy [Recovered/Resolved]

NARRATIVE: CASE EVENT DATE: 20200309
